FAERS Safety Report 9176413 (Version 2)
Quarter: 2013Q2

REPORT INFORMATION
  Report Type: Spontaneous
  Country: US (occurrence: US)
  Receive Date: 20130321
  Receipt Date: 20130530
  Transmission Date: 20140414
  Serious: Yes (Other)
  Sender: FDA-Public Use
  Company Number: US-AMGEN-USASP2013017278

PATIENT
  Age: 75 Year
  Sex: Female
  Weight: 72.79 kg

DRUGS (13)
  1. PROLIA [Suspect]
     Indication: PRODUCT USED FOR UNKNOWN INDICATION
     Dosage: 60 MG, Q6MO
     Route: 058
     Dates: start: 20130129
  2. CALCIUM [Concomitant]
  3. VITAMIN D                          /00107901/ [Concomitant]
  4. VITAMIN E                          /00110501/ [Concomitant]
  5. REQUIP [Concomitant]
  6. SIMVASTATIN [Concomitant]
     Indication: HYPERTENSION
     Dosage: 10 MG, UNK
     Route: 048
  7. VOLTAREN                           /00372301/ [Concomitant]
  8. LOSARTAN/HYDROCHLOROTHIAZIDE [Concomitant]
  9. OMEPRAZOLE [Concomitant]
  10. ANASTROZOLE [Concomitant]
  11. PRIMADEX                           /00086101/ [Concomitant]
     Indication: BREAST CANCER
     Dosage: 1 MG, UNK
     Route: 048
     Dates: start: 20120904
  12. VOLTAREN                           /00372301/ [Concomitant]
     Dosage: 50 MG, UNK
     Route: 048
  13. ROPINIROLE [Concomitant]
     Dosage: 1 MG, UNK
     Route: 048

REACTIONS (3)
  - Impaired healing [Not Recovered/Not Resolved]
  - Hypoaesthesia [Not Recovered/Not Resolved]
  - Gait disturbance [Not Recovered/Not Resolved]
